FAERS Safety Report 24040393 (Version 1)
Quarter: 2024Q3

REPORT INFORMATION
  Report Type: Spontaneous
  Country: US (occurrence: None)
  Receive Date: 20240701
  Receipt Date: 20240701
  Transmission Date: 20241017
  Serious: Yes (Other)
  Sender: Public
  Company Number: None

PATIENT
  Age: 45 Year
  Sex: Female
  Weight: 58.5 kg

DRUGS (6)
  1. DUPIXENT [Suspect]
     Active Substance: DUPILUMAB
     Indication: Eczema
     Dates: start: 20210601, end: 20211201
  2. Ba Zheng san [Concomitant]
  3. ZINC [Concomitant]
     Active Substance: ZINC
  4. SELENIUM [Concomitant]
     Active Substance: SELENIUM
  5. undercylenic acid [Concomitant]
  6. PROBIOTICS NOS [Concomitant]
     Active Substance: PROBIOTICS NOS

REACTIONS (5)
  - Overgrowth bacterial [None]
  - Rash [None]
  - Rash [None]
  - Rash [None]
  - Bacterial sepsis [None]
